FAERS Safety Report 5693227-2 (Version None)
Quarter: 2008Q2

REPORT INFORMATION
  Report Type: 
  Country: None (occurrence: None)
  Receive Date: 20080403
  Receipt Date: 20080324
  Transmission Date: 20081010
  Serious: Yes (Hospitalization)
  Sender: FDA-Public Use
  Company Number: PHHO2008ES03525

PATIENT
  Age: 65 Year
  Sex: Female

DRUGS (5)
  1. TACROLIMUS [Suspect]
     Indication: RENAL TRANSPLANT
     Dosage: 2.75 MG/DAILY
     Route: 048
     Dates: start: 20080215
  2. TACROLIMUS [Suspect]
     Dosage: 2.50 MG/DAILY
     Route: 048
     Dates: end: 20080314
  3. MYFORTIC [Suspect]
     Indication: RENAL TRANSPLANT
     Route: 048
     Dates: end: 20080313
  4. DIURETICS [Suspect]
  5. CYMEVENE [Concomitant]

REACTIONS (8)
  - ACUTE PRERENAL FAILURE [None]
  - ASTHENIA [None]
  - DEHYDRATION [None]
  - DIARRHOEA [None]
  - HYPOTENSION [None]
  - NEUTROPENIA [None]
  - PANCYTOPENIA [None]
  - PYREXIA [None]
